FAERS Safety Report 18032816 (Version 1)
Quarter: 2020Q3

REPORT INFORMATION
  Report Type: Spontaneous
  Country: US (occurrence: US)
  Receive Date: 20200716
  Receipt Date: 20200716
  Transmission Date: 20201103
  Serious: No
  Sender: FDA-Public Use
  Company Number: US-AERIE-US-2020-001397

PATIENT

DRUGS (6)
  1. SYNTHROID [Concomitant]
     Active Substance: LEVOTHYROXINE SODIUM
     Indication: THYROID DISORDER
     Dosage: 1 DOSAGE FORM, QD
     Route: 048
     Dates: start: 2000
  2. LUMIGAN [Concomitant]
     Active Substance: BIMATOPROST
     Indication: CATARACT
     Dosage: 1 GTT DROPS, QHS
     Route: 047
     Dates: start: 202001
  3. BRIMONIDINE [Suspect]
     Active Substance: BRIMONIDINE TARTRATE
     Indication: GLAUCOMA
     Dosage: 1 GTT DROPS, TID
     Route: 047
     Dates: start: 202001, end: 20200413
  4. PREDNISOLONE. [Concomitant]
     Active Substance: PREDNISOLONE
     Indication: CATARACT
     Dosage: 1 GTT DROPS, Q4H
     Route: 047
     Dates: start: 202003
  5. RHOPRESSA [Suspect]
     Active Substance: NETARSUDIL MESYLATE
     Indication: GLAUCOMA
     Dosage: 1 GTT DROPS, QHS
     Route: 047
     Dates: start: 20200405, end: 20200412
  6. DORZOLAMIDE [Concomitant]
     Active Substance: DORZOLAMIDE
     Indication: CATARACT
     Dosage: 1 GTT DROPS, TID
     Route: 047
     Dates: start: 2017

REACTIONS (2)
  - Intraocular pressure increased [Not Recovered/Not Resolved]
  - Eye pruritus [Recovered/Resolved]
